FAERS Safety Report 22669061 (Version 3)
Quarter: 2025Q1

REPORT INFORMATION
  Report Type: Spontaneous
  Country: US (occurrence: US)
  Receive Date: 20230704
  Receipt Date: 20250103
  Transmission Date: 20250408
  Serious: No
  Sender: SANOFI AVENTIS
  Company Number: US-SA-SAC20230703000902

PATIENT
  Age: 49 Year
  Sex: Female

DRUGS (1)
  1. DUPIXENT [Suspect]
     Active Substance: DUPILUMAB
     Indication: Nasal polyps
     Dosage: 300 MG, QOW
     Route: 058
     Dates: start: 20220520

REACTIONS (6)
  - Joint swelling [Not Recovered/Not Resolved]
  - Varicose vein [Unknown]
  - Hypercholesterolaemia [Unknown]
  - Arthralgia [Not Recovered/Not Resolved]
  - Keratitis [Unknown]
  - Dental operation [Unknown]

NARRATIVE: CASE EVENT DATE: 20220520
